FAERS Safety Report 6986779-3 (Version None)
Quarter: 2010Q3

REPORT INFORMATION
  Report Type: 
  Country: None (occurrence: None)
  Receive Date: 20100915
  Receipt Date: 20090803
  Transmission Date: 20110219
  Serious: No
  Sender: FDA-Public Use
  Company Number: US-WYE-H10437709

PATIENT
  Sex: Female

DRUGS (6)
  1. PRISTIQ [Suspect]
     Indication: DEPRESSION
     Route: 048
     Dates: start: 20090720, end: 20090730
  2. ACETYLSALICYLIC ACID [Concomitant]
  3. SIMVASTATIN [Concomitant]
  4. GLUCOSAMINE [Concomitant]
  5. LEVOTHYROXINE [Concomitant]
  6. ZETIA [Concomitant]

REACTIONS (2)
  - FLATULENCE [None]
  - PELVIC PAIN [None]
